FAERS Safety Report 8138281-3 (Version None)
Quarter: 2012Q1

REPORT INFORMATION
  Report Type: 
  Country: None (occurrence: None)
  Receive Date: 20120213
  Receipt Date: 20120207
  Transmission Date: 20120608
  Serious: Yes (Life-Threatening, Hospitalization)
  Sender: FDA-Public Use
  Company Number: 2012SP005449

PATIENT
  Age: 58 Year
  Sex: Female

DRUGS (3)
  1. RIBAVIRIN [Suspect]
     Indication: HEPATITIS C
     Dosage: 400 MG;BID;
     Dates: start: 20110119, end: 20120130
  2. BOCEPREVIR (SCH-503034) [Suspect]
     Dosage: 800 MG;TID;
     Dates: start: 20110119, end: 20120130
  3. PEG-INTRON [Suspect]
     Indication: HEPATITIS C
     Dosage: 100 MCG;QW;
     Dates: start: 20110119, end: 20120130

REACTIONS (2)
  - SEPTIC SHOCK [None]
  - DIALYSIS [None]
